FAERS Safety Report 24636335 (Version 1)
Quarter: 2024Q4

REPORT INFORMATION
  Report Type: Spontaneous
  Country: ES (occurrence: ES)
  Receive Date: 20241119
  Receipt Date: 20241119
  Transmission Date: 20250114
  Serious: Yes (Death, Life-Threatening, Hospitalization, Other)
  Sender: AUROBINDO
  Company Number: ES-JNJFOC-20241084677

PATIENT
  Age: 84 Year
  Sex: Male

DRUGS (13)
  1. LENALIDOMIDE [Suspect]
     Active Substance: LENALIDOMIDE
     Indication: Plasma cell myeloma
     Dosage: UNK
     Route: 065
  2. DARATUMUMAB [Suspect]
     Active Substance: DARATUMUMAB
     Indication: Plasma cell myeloma
     Dosage: 1800 MILLIGRAM (CYCLE 1 DAY 1)
     Route: 058
     Dates: start: 20241009, end: 20241009
  3. DARATUMUMAB [Suspect]
     Active Substance: DARATUMUMAB
     Dosage: 1800 MILLIGRAM (CYCLE 1 DAY 8)
     Route: 058
     Dates: start: 20241016, end: 20241016
  4. DEXAMETHASONE [Suspect]
     Active Substance: DEXAMETHASONE
     Indication: Plasma cell myeloma
     Dosage: UNK
     Route: 065
  5. ASPIRIN [Concomitant]
     Active Substance: ASPIRIN
     Indication: Myocardial ischaemia
     Dosage: 100 MILLIGRAM
     Route: 048
  6. Cafinitrina [Concomitant]
     Indication: Myocardial ischaemia
     Dosage: UNK
     Route: 060
  7. Dermatrans [Concomitant]
     Indication: Myocardial ischaemia
     Dosage: 5 MILLIGRAM
     Route: 030
  8. RANEXA [Concomitant]
     Active Substance: RANOLAZINE
     Indication: Myocardial ischaemia
     Dosage: 500 MILLIGRAM, TWO TIMES A DAY
     Route: 048
  9. TORSEMIDE [Concomitant]
     Active Substance: TORSEMIDE
     Indication: Myocardial ischaemia
     Dosage: 10 MILLIGRAM
     Route: 048
  10. EPLERENONA NORMON [Concomitant]
     Indication: Myocardial ischaemia
     Dosage: 25 MILLIGRAM
     Route: 048
  11. LOSARTAN [Concomitant]
     Active Substance: LOSARTAN
     Indication: Hypertension
     Dosage: 100 MILLIGRAM
     Route: 048
  12. ATORVASTATIN CALCIUM\EZETIMIBE [Concomitant]
     Active Substance: ATORVASTATIN CALCIUM\EZETIMIBE
     Indication: Hyperlipidaemia
     Dosage: 80/10 MG
     Route: 048
  13. TAMSOLIN [Concomitant]
     Indication: Benign prostatic hyperplasia
     Dosage: 0.4 MILLIGRAM
     Route: 048

REACTIONS (7)
  - Pneumonia aspiration [Fatal]
  - Delirium [Unknown]
  - Retinal artery occlusion [Unknown]
  - Urinary tract infection [Unknown]
  - Plasma cell myeloma [Unknown]
  - Klebsiella bacteraemia [Recovering/Resolving]
  - Pyrexia [Recovered/Resolved]

NARRATIVE: CASE EVENT DATE: 20241016
